FAERS Safety Report 6924200-1 (Version None)
Quarter: 2010Q3

REPORT INFORMATION
  Report Type: 
  Country: None (occurrence: None)
  Receive Date: 20100813
  Receipt Date: 20100803
  Transmission Date: 20110219
  Serious: Yes (Hospitalization)
  Sender: FDA-Public Use
  Company Number: KR-ABBOTT-10P-090-0661272-00

PATIENT
  Age: 49 Year
  Sex: Male

DRUGS (4)
  1. HUMIRA [Suspect]
     Indication: PSORIATIC ARTHROPATHY
     Route: 058
     Dates: start: 20100525
  2. MTX [Concomitant]
     Indication: PSORIATIC ARTHROPATHY
  3. HYDROXYCHLOROQUINE [Concomitant]
     Indication: PSORIATIC ARTHROPATHY
  4. SOLETON [Concomitant]
     Indication: PSORIATIC ARTHROPATHY

REACTIONS (1)
  - COUGH [None]
